FAERS Safety Report 24882749 (Version 3)
Quarter: 2025Q1

REPORT INFORMATION
  Report Type: Spontaneous
  Country: TR (occurrence: TR)
  Receive Date: 20250124
  Receipt Date: 20250211
  Transmission Date: 20250409
  Serious: No
  Sender: ELI LILLY AND COMPANY
  Company Number: TR-ELI_LILLY_AND_COMPANY-TR202501010917

PATIENT
  Sex: Female

DRUGS (1)
  1. TERIPARATIDE [Suspect]
     Active Substance: TERIPARATIDE
     Indication: Product used for unknown indication
     Route: 065
     Dates: start: 2024

REACTIONS (1)
  - Bone pain [Unknown]
